FAERS Safety Report 5850489-6 (Version None)
Quarter: 2008Q3

REPORT INFORMATION
  Report Type: 
  Country: None (occurrence: None)
  Receive Date: 20080819
  Receipt Date: 20080807
  Transmission Date: 20090109
  Serious: Yes (Other)
  Sender: FDA-Public Use
  Company Number: US-PFIZER INC-2008066541

PATIENT
  Sex: Female
  Weight: 63.5 kg

DRUGS (5)
  1. RELPAX [Suspect]
     Indication: MIGRAINE
     Route: 048
  2. IMITREX [Concomitant]
  3. WELLBUTRIN [Concomitant]
  4. HERBAL NOS/MINERALS NOS [Concomitant]
  5. LAMICTAL [Concomitant]

REACTIONS (4)
  - DEHYDRATION [None]
  - INSOMNIA [None]
  - NAUSEA [None]
  - VOMITING [None]
